FAERS Safety Report 20181933 (Version 14)
Quarter: 2022Q3

REPORT INFORMATION
  Report Type: Report from Study
  Country: US (occurrence: US)
  Receive Date: 20211214
  Receipt Date: 20220908
  Transmission Date: 20221026
  Serious: Yes (Hospitalization)
  Sender: FDA-Public Use
  Company Number: US-NOVARTISTESTPH-NVSC2021US285390

PATIENT
  Sex: Female
  Weight: 97.506 kg

DRUGS (8)
  1. TREPROSTINIL [Suspect]
     Active Substance: TREPROSTINIL
     Indication: Pulmonary arterial hypertension
     Dosage: 20 NG/KG/MIN, CONT
     Route: 058
     Dates: start: 20210411
  2. TREPROSTINIL [Suspect]
     Active Substance: TREPROSTINIL
     Dosage: 20 NG/KG/MIN, CONT
     Route: 058
     Dates: start: 20211104
  3. TREPROSTINIL [Suspect]
     Active Substance: TREPROSTINIL
     Dosage: 10 NG/KG/MIN, CONT
     Route: 058
     Dates: end: 202207
  4. TREPROSTINIL [Suspect]
     Active Substance: TREPROSTINIL
     Dosage: 20 NG/KG/MIN, CONT
     Route: 058
  5. ADEMPAS [Suspect]
     Active Substance: RIOCIGUAT
     Indication: Product used for unknown indication
     Dosage: UNK
     Route: 065
     Dates: end: 20220329
  6. TYVASO [Concomitant]
     Active Substance: TREPROSTINIL
     Indication: Pulmonary arterial hypertension
     Dosage: 18 UG, QID (3 BREATHS)
     Dates: start: 20220715
  7. OPSUMIT [Concomitant]
     Active Substance: MACITENTAN
     Indication: Product used for unknown indication
     Dosage: UNK
     Route: 065
  8. REMODULIN [Concomitant]
     Active Substance: TREPROSTINIL
     Indication: Product used for unknown indication
     Dosage: 20 NG/KG/MIN
     Route: 058

REACTIONS (15)
  - COVID-19 [Unknown]
  - Abdominal pain upper [Unknown]
  - Headache [Not Recovered/Not Resolved]
  - Muscle tightness [Unknown]
  - Nasopharyngitis [Unknown]
  - Daydreaming [Unknown]
  - Feeling abnormal [Unknown]
  - Memory impairment [Unknown]
  - Subcutaneous drug absorption impaired [Unknown]
  - Dyspnoea [Unknown]
  - Fatigue [Unknown]
  - Nausea [Recovered/Resolved]
  - Device issue [Unknown]
  - Device alarm issue [Unknown]
  - Incorrect dose administered [Unknown]
